FAERS Safety Report 4308796-4 (Version None)
Quarter: 2004Q1

REPORT INFORMATION
  Report Type: 
  Country: None (occurrence: None)
  Receive Date: 20040227
  Receipt Date: 20040219
  Transmission Date: 20041129
  Serious: Yes (Hospitalization)
  Sender: FDA-Public Use
  Company Number: 2004011638

PATIENT
  Sex: Male

DRUGS (2)
  1. VFEND [Suspect]
     Indication: ASPERGILLOSIS
     Dates: start: 20040201
  2. ITRACONAZOLE [Concomitant]

REACTIONS (3)
  - ALVEOLITIS [None]
  - RESPIRATORY FAILURE [None]
  - VIRAL INFECTION [None]
